FAERS Safety Report 9645888 (Version 2)
Quarter: 2013Q4

REPORT INFORMATION
  Report Type: Spontaneous
  Country: US (occurrence: US)
  Receive Date: 20131025
  Receipt Date: 20131206
  Transmission Date: 20140711
  Serious: Yes (Other)
  Sender: FDA-Public Use
  Company Number: US-TEVA-440366USA

PATIENT
  Age: 40 Year
  Sex: Female
  Weight: 71.73 kg

DRUGS (2)
  1. PARAGARD 380A [Suspect]
     Indication: CONTRACEPTION
     Route: 015
     Dates: start: 20131014, end: 20131018
  2. PARAGARD 380A [Suspect]
     Route: 015
     Dates: start: 20131018

REACTIONS (3)
  - Vaginal haemorrhage [Unknown]
  - Device dislocation [Recovered/Resolved]
  - Exposure during breast feeding [Unknown]
